FAERS Safety Report 11088910 (Version 8)
Quarter: 2021Q3

REPORT INFORMATION
  Report Type: Spontaneous
  Country: US (occurrence: US)
  Receive Date: 20150504
  Receipt Date: 20210826
  Transmission Date: 20211014
  Serious: Yes (Other)
  Sender: FDA-Public Use
  Company Number: US-BIOMARINAP-US-2014-104979

PATIENT
  Age: 27 Year
  Sex: Male

DRUGS (3)
  1. ALDURAZYME [Suspect]
     Active Substance: LARONIDASE
     Dosage: 58 MILLIGRAM, QW
     Route: 042
     Dates: start: 20201126
  2. ALDURAZYME [Suspect]
     Active Substance: LARONIDASE
     Dosage: 55.1 MILLIGRAM, QW
     Route: 042
     Dates: start: 20120724
  3. ALDURAZYME [Suspect]
     Active Substance: LARONIDASE
     Indication: MUCOPOLYSACCHARIDOSIS I
     Dosage: 58 MILLIGRAM, QW
     Route: 042
     Dates: start: 20050120

REACTIONS (11)
  - Tenoplasty [Unknown]
  - Spinal operation [Unknown]
  - Carpal tunnel syndrome [Recovered/Resolved]
  - Tooth extraction [Recovering/Resolving]
  - Surgery [Unknown]
  - Back pain [Recovering/Resolving]
  - Product administration error [Unknown]
  - Wound [Recovering/Resolving]
  - Nasopharyngitis [Recovering/Resolving]
  - Mobility decreased [Unknown]
  - Umbilical hernia [Recovering/Resolving]

NARRATIVE: CASE EVENT DATE: 20141103
